FAERS Safety Report 6467354-6 (Version None)
Quarter: 2009Q4

REPORT INFORMATION
  Report Type: 
  Country: None (occurrence: None)
  Receive Date: 20091202
  Receipt Date: 20091124
  Transmission Date: 20100525
  Serious: Yes (Other)
  Sender: FDA-Public Use
  Company Number: JP-NOVOPROD-300606

PATIENT
  Age: 8 Year
  Sex: Male
  Weight: 20 kg

DRUGS (4)
  1. NORDITROPIN NORDIFLEX [Suspect]
     Indication: GROWTH HORMONE DEFICIENCY
     Dosage: 0,4-0.5 MG, QD
     Route: 058
     Dates: start: 20070901
  2. CORTRIL                            /00028601/ [Concomitant]
     Dosage: 14 MG, QD
     Route: 048
     Dates: start: 20050825
  3. DESMOPRESSIN [Concomitant]
     Dosage: 10 UNK, QD
     Route: 045
     Dates: start: 20050818
  4. THYRADIN [Concomitant]
     Dosage: 65 UNK, QD
     Route: 048
     Dates: start: 20071101

REACTIONS (2)
  - CONDITION AGGRAVATED [None]
  - CRANIOPHARYNGIOMA [None]
